FAERS Safety Report 25078880 (Version 3)
Quarter: 2025Q3

REPORT INFORMATION
  Report Type: Spontaneous
  Country: GB (occurrence: GB)
  Receive Date: 20250314
  Receipt Date: 20250818
  Transmission Date: 20251021
  Serious: Yes (Hospitalization, Other)
  Sender: MYLAN
  Company Number: GB-MYLANLABS-2025M1020743

PATIENT
  Sex: Male

DRUGS (2)
  1. CLOZARIL [Suspect]
     Active Substance: CLOZAPINE
     Indication: Schizophrenia
     Dates: start: 19930322, end: 20250304
  2. CLOZARIL [Suspect]
     Active Substance: CLOZAPINE

REACTIONS (6)
  - Korsakoff^s syndrome [Unknown]
  - Gastrointestinal haemorrhage [Unknown]
  - Fall [Unknown]
  - Confusional state [Unknown]
  - Thrombocytopenia [Unknown]
  - Treatment noncompliance [Unknown]
